FAERS Safety Report 10065659 (Version 1)
Quarter: 2014Q2

REPORT INFORMATION
  Report Type: Spontaneous
  Country: US (occurrence: US)
  Receive Date: 20140408
  Receipt Date: 20140408
  Transmission Date: 20141212
  Serious: No
  Sender: FDA-Public Use
  Company Number: US-PFIZER INC-2014093318

PATIENT
  Age: 57 Year
  Sex: Male
  Weight: 95 kg

DRUGS (2)
  1. SUTENT [Suspect]
     Indication: RENAL CANCER
     Dosage: 37.5 MG, CYCLIC, QD 2 WKS OFF 1 WK
     Route: 048
     Dates: start: 20140124, end: 20140228
  2. ZYPREXA [Concomitant]
     Dosage: UNK

REACTIONS (3)
  - Stomatitis [Unknown]
  - Weight decreased [Unknown]
  - Rash [Unknown]
